FAERS Safety Report 20516931 (Version 2)
Quarter: 2022Q1

REPORT INFORMATION
  Report Type: Spontaneous
  Country: US (occurrence: US)
  Receive Date: 20220225
  Receipt Date: 20220303
  Transmission Date: 20220423
  Serious: Yes (Other)
  Sender: FDA-Public Use
  Company Number: US-NOVARTISPH-NVSC2022US039608

PATIENT
  Sex: Male

DRUGS (2)
  1. ENTRESTO [Suspect]
     Active Substance: SACUBITRIL\VALSARTAN
     Indication: Product used for unknown indication
     Dosage: 50 MG (24/26 MG: SACUBITRIL 24.3 MG, VALSARTAN 25.7 MG) (STARTED APPROXIMATELY 4 MONTHS AGO)
     Route: 048
  2. ENTRESTO [Suspect]
     Active Substance: SACUBITRIL\VALSARTAN
     Dosage: 100 MG (49/51 MG: SACUBITRIL 48.6MG, VALSARTAN 51.4MG)
     Route: 048
     Dates: start: 202202

REACTIONS (4)
  - Cardiac failure chronic [Unknown]
  - Angioedema [Not Recovered/Not Resolved]
  - Ejection fraction decreased [Unknown]
  - Malaise [Unknown]
